FAERS Safety Report 20081019 (Version 5)
Quarter: 2023Q1

REPORT INFORMATION
  Report Type: Report from Study
  Country: DE (occurrence: None)
  Receive Date: 20211117
  Receipt Date: 20230322
  Transmission Date: 20230418
  Serious: Yes (Hospitalization, Other)
  Sender: FDA-Public Use
  Company Number: DE-ROCHE-2953451

PATIENT
  Age: 69 Year
  Sex: Female
  Weight: 62.5 kg

DRUGS (35)
  1. ATEZOLIZUMAB [Suspect]
     Active Substance: ATEZOLIZUMAB
     Indication: Triple negative breast cancer
     Dosage: DATE OF LAST DOSE PRIOR TO SAE: 18/OCT/2021
     Route: 042
     Dates: start: 20210614, end: 20211018
  2. PACLITAXEL [Suspect]
     Active Substance: PACLITAXEL
     Indication: Triple negative breast cancer
     Route: 042
     Dates: start: 20210614
  3. PACLITAXEL [Suspect]
     Active Substance: PACLITAXEL
     Dosage: DATE OF LAST DOSE PRIOR TO SAE: 02/AUG/2021
     Route: 042
     Dates: start: 20210614
  4. CARBOPLATIN [Suspect]
     Active Substance: CARBOPLATIN
     Indication: Triple negative breast cancer
     Dosage: DATE OF LAST DOSE PRIOR TO SAE: 30/AUG/2021
     Route: 042
     Dates: start: 20210614
  5. EPIRUBICIN [Suspect]
     Active Substance: EPIRUBICIN
     Indication: Triple negative breast cancer
     Dosage: DATE OF LAST DOSE PRIOR TO SAE: 18/OCT/2021
     Route: 042
     Dates: start: 20210927
  6. EPIRUBICIN [Suspect]
     Active Substance: EPIRUBICIN
     Route: 042
  7. CYCLOPHOSPHAMIDE [Suspect]
     Active Substance: CYCLOPHOSPHAMIDE
     Indication: Triple negative breast cancer
     Dosage: DATE OF LAST DOSE PRIOR TO SAE: 18/OCT/2021
     Route: 042
     Dates: start: 20210927
  8. CYCLOPHOSPHAMIDE [Suspect]
     Active Substance: CYCLOPHOSPHAMIDE
     Route: 042
  9. ENOXAPARIN SODIUM [Concomitant]
     Active Substance: ENOXAPARIN SODIUM
     Dates: start: 20210528, end: 20210604
  10. MOVICOL [Concomitant]
     Active Substance: POLYETHYLENE GLYCOL 3350\POTASSIUM CHLORIDE\SODIUM BICARBONATE\SODIUM CHLORIDE
     Dates: start: 20210705, end: 20211203
  11. PREGABALIN [Concomitant]
     Active Substance: PREGABALIN
     Dates: start: 20210712, end: 20210726
  12. PREGABALIN [Concomitant]
     Active Substance: PREGABALIN
     Dates: start: 20210726, end: 20210808
  13. VITAMIN C [Concomitant]
     Active Substance: ASCORBIC ACID
     Dates: start: 20210811, end: 20210817
  14. VITAMIN B12 [Concomitant]
     Active Substance: CYANOCOBALAMIN
     Dates: start: 20210811, end: 20210817
  15. FERROUS SULFATE [Concomitant]
     Active Substance: FERROUS SULFATE
     Dates: start: 20210818
  16. MESNA [Concomitant]
     Active Substance: MESNA
     Dates: start: 20210927, end: 20211108
  17. MESNA [Concomitant]
     Active Substance: MESNA
     Dates: start: 20210927, end: 20211108
  18. DIMETINDENMALEAT [Concomitant]
     Dates: start: 20210614, end: 20210830
  19. CIMETIDINE [Concomitant]
     Active Substance: CIMETIDINE
     Dates: start: 20210614, end: 20210830
  20. DEXAMETHASONE [Concomitant]
     Active Substance: DEXAMETHASONE
     Dates: start: 20210614, end: 20210816
  21. DEXAMETHASONE [Concomitant]
     Active Substance: DEXAMETHASONE
  22. GRANISETRON [Concomitant]
     Active Substance: GRANISETRON
     Dates: start: 20210614, end: 20211108
  23. APREPITANT [Concomitant]
     Active Substance: APREPITANT
     Dates: start: 20210614
  24. APREPITANT [Concomitant]
     Active Substance: APREPITANT
     Dates: start: 20210906, end: 20211108
  25. MESNA [Concomitant]
     Active Substance: MESNA
  26. APREPITANT [Concomitant]
     Active Substance: APREPITANT
  27. NEULASTA [Concomitant]
     Active Substance: PEGFILGRASTIM
     Dates: start: 20211007, end: 20211007
  28. CIPROFLOXACIN [Concomitant]
     Active Substance: CIPROFLOXACIN
     Dates: start: 20211025, end: 20211026
  29. CIPROFLOXACIN [Concomitant]
     Active Substance: CIPROFLOXACIN
     Dates: start: 20211025, end: 20211026
  30. CIPROFLOXACIN [Concomitant]
     Active Substance: CIPROFLOXACIN
     Dates: start: 20211007, end: 20211007
  31. CHLORHEXIDINE [Concomitant]
     Active Substance: CHLORHEXIDINE
     Dates: start: 20211007, end: 20211122
  32. PIPERACILLIN SODIUM\TAZOBACTAM SODIUM [Concomitant]
     Active Substance: PIPERACILLIN SODIUM\TAZOBACTAM SODIUM
  33. AMPHOTERICIN B [Concomitant]
     Active Substance: AMPHOTERICIN B
     Dosage: 100 MG/ML OTHER
     Dates: start: 20211011, end: 20211122
  34. FOLIC ACID [Concomitant]
     Active Substance: FOLIC ACID
     Dates: start: 20210811, end: 20210817
  35. MESNA-CELL [Concomitant]
     Dates: start: 20210927, end: 20211108

REACTIONS (2)
  - Neutrophil count decreased [Recovered/Resolved]
  - Pancytopenia [Unknown]

NARRATIVE: CASE EVENT DATE: 20211001
